FAERS Safety Report 10335209 (Version 1)
Quarter: 2014Q3

REPORT INFORMATION
  Report Type: Spontaneous
  Country: US (occurrence: US)
  Receive Date: 20140723
  Receipt Date: 20140723
  Transmission Date: 20150326
  Serious: Yes (Other)
  Sender: FDA-Public Use
  Company Number: US-JNJFOC-20140706366

PATIENT
  Sex: Female

DRUGS (2)
  1. LISTERINE TOTAL CARE ANTICAVITY - FRESH MINT [Suspect]
     Active Substance: SODIUM FLUORIDE
     Indication: PROPHYLAXIS
     Route: 048
  2. LISTERINE TOTAL CARE ANTICAVITY - FRESH MINT [Suspect]
     Active Substance: SODIUM FLUORIDE
     Indication: TOOTH DISORDER
     Route: 048

REACTIONS (1)
  - Coeliac disease [Unknown]
